FAERS Safety Report 5280138-X (Version None)
Quarter: 2007Q1

REPORT INFORMATION
  Report Type: 
  Country: None (occurrence: None)
  Receive Date: 20061215
  Receipt Date: 20051129
  Transmission Date: 20070707
  Serious: Yes (Death)
  Sender: FDA-Public Use
  Company Number: HQWYE788801DEC05

PATIENT
  Age: 81 Year
  Sex: Male
  Weight: 92.62 kg

DRUGS (11)
  1. EFFEXOR XR [Suspect]
     Indication: MAJOR DEPRESSION
     Dosage: SEE IMAGE
     Route: 048
     Dates: start: 20051019, end: 20051113
  2. EFFEXOR XR [Suspect]
     Indication: MAJOR DEPRESSION
     Dosage: SEE IMAGE
     Route: 048
     Dates: start: 20051114
  3. RISPERDAL [Concomitant]
  4. SYNTHROID [Concomitant]
  5. COREG [Concomitant]
  6. DYNACIRC [Concomitant]
  7. ASPIRIN [Concomitant]
  8. CENTRUM SILVER (MULTIVITAMIN/MULTIMINERAL) [Concomitant]
  9. BUSPAR [Concomitant]
  10. AMBIEN [Concomitant]
  11. VYTORIN [Concomitant]

REACTIONS (1)
  - COMPLETED SUICIDE [None]
